FAERS Safety Report 18247167 (Version 2)
Quarter: 2020Q3

REPORT INFORMATION
  Report Type: Spontaneous
  Country: JP (occurrence: JP)
  Receive Date: 20200909
  Receipt Date: 20200918
  Transmission Date: 20201103
  Serious: Yes (Hospitalization, Other)
  Sender: FDA-Public Use
  Company Number: JP-SUNOVION-2020DSP009486

PATIENT
  Age: 5 Decade
  Sex: Female

DRUGS (5)
  1. LATUDA [Suspect]
     Active Substance: LURASIDONE HYDROCHLORIDE
     Dosage: 40 MG, QD
     Route: 048
  2. SULPIRIDE [Concomitant]
     Active Substance: SULPIRIDE
     Dosage: 150 MG, QD,LONG TERM
     Route: 065
  3. LITHIUM CARBONATE. [Concomitant]
     Active Substance: LITHIUM CARBONATE
     Dosage: 300 MG, QD,LONG TERM
     Route: 065
  4. LATUDA [Suspect]
     Active Substance: LURASIDONE HYDROCHLORIDE
     Dosage: 20 MG, QD
     Route: 048
  5. LATUDA [Suspect]
     Active Substance: LURASIDONE HYDROCHLORIDE
     Indication: BIPOLAR I DISORDER
     Dosage: 20 MG, QD
     Route: 048

REACTIONS (2)
  - Tremor [Recovered/Resolved]
  - Bipolar disorder [Recovered/Resolved]

NARRATIVE: CASE EVENT DATE: 202007
